FAERS Safety Report 25304018 (Version 1)
Quarter: 2025Q2

REPORT INFORMATION
  Report Type: Spontaneous
  Country: GB (occurrence: GB)
  Receive Date: 20250513
  Receipt Date: 20250513
  Transmission Date: 20250716
  Serious: Yes (Other)
  Sender: RANBAXY
  Company Number: GB-SUN PHARMACEUTICAL INDUSTRIES LTD-2025RR-506700

PATIENT
  Age: 1 Year
  Sex: Female
  Weight: 12 kg

DRUGS (1)
  1. WARFARIN [Suspect]
     Active Substance: WARFARIN
     Indication: Heart valve replacement
     Route: 065

REACTIONS (1)
  - Hepatitis [Recovering/Resolving]
